FAERS Safety Report 5747237-7 (Version None)
Quarter: 2008Q2

REPORT INFORMATION
  Report Type: 
  Country: None (occurrence: None)
  Receive Date: 20080520
  Receipt Date: 20080501
  Transmission Date: 20081010
  Serious: Yes (Other)
  Sender: FDA-Public Use
  Company Number: 2008PL000069

PATIENT
  Age: 47 Year
  Sex: Male

DRUGS (4)
  1. AZATHIOPRINE [Suspect]
     Dosage: 100 MG; QD; PO
     Route: 048
     Dates: start: 20080501
  2. CYCLOSPORINE [Concomitant]
  3. PREDNISOLONE [Concomitant]
  4. AMLODIOPINE [Concomitant]

REACTIONS (1)
  - BASAL CELL CARCINOMA [None]
